FAERS Safety Report 21353948 (Version 1)
Quarter: 2022Q3

REPORT INFORMATION
  Report Type: Other
  Country: US (occurrence: None)
  Receive Date: 20220920
  Receipt Date: 20220920
  Transmission Date: 20221027
  Serious: Yes (Death, Hospitalization)
  Sender: FDA-Public Use
  Company Number: US-ROCHE-3166963

PATIENT
  Age: 51 Year
  Sex: Female

DRUGS (1)
  1. OCREVUS [Suspect]
     Active Substance: OCRELIZUMAB
     Indication: Multiple sclerosis
     Dosage: NO
     Route: 042
     Dates: start: 20170914, end: 20211001

REACTIONS (18)
  - Death [Fatal]
  - COVID-19 pneumonia [Unknown]
  - Fall [Unknown]
  - Hypoxia [Unknown]
  - Pneumothorax [Unknown]
  - Colitis ischaemic [Unknown]
  - Perforation [Unknown]
  - Bradycardia [Unknown]
  - Tachypnoea [Unknown]
  - Acute respiratory failure [Unknown]
  - Septic shock [Unknown]
  - Necrotising colitis [Unknown]
  - Gastrointestinal wall thickening [Unknown]
  - Subcutaneous emphysema [Unknown]
  - Rib fracture [Unknown]
  - Mucosal ulceration [Unknown]
  - Acute respiratory distress syndrome [Unknown]
  - Thrombosis [Unknown]

NARRATIVE: CASE EVENT DATE: 20220605
